FAERS Safety Report 19471338 (Version 1)
Quarter: 2021Q2

REPORT INFORMATION
  Report Type: Spontaneous
  Country: US (occurrence: US)
  Receive Date: 20210628
  Receipt Date: 20210628
  Transmission Date: 20210717
  Serious: No
  Sender: FDA-Public Use
  Company Number: None

PATIENT
  Age: 27 Year
  Sex: Female
  Weight: 63 kg

DRUGS (1)
  1. ETONOGESTREL AND ETHINYL ESTRADIOL VAGINAL RING [Suspect]
     Active Substance: ETHINYL ESTRADIOL\ETONOGESTREL
     Indication: CONTRACEPTION
     Dosage: ?          OTHER FREQUENCY:3 WEEKS;?
     Route: 067
     Dates: start: 20201001, end: 20210625

REACTIONS (2)
  - Pain [None]
  - Pelvic inflammatory disease [None]

NARRATIVE: CASE EVENT DATE: 20210517
